FAERS Safety Report 9051194 (Version 4)
Quarter: 2014Q1

REPORT INFORMATION
  Report Type: Report from Study
  Country: AR (occurrence: AR)
  Receive Date: 20130206
  Receipt Date: 20140304
  Transmission Date: 20141002
  Serious: Yes (Death, Hospitalization)
  Sender: FDA-Public Use
  Company Number: AR-SANOFI-AVENTIS-2013SA008106

PATIENT
  Age: 75 Year
  Sex: Male
  Weight: 87.5 kg

DRUGS (10)
  1. BLINDED THERAPY [Suspect]
     Indication: DIABETES MELLITUS
     Route: 058
     Dates: start: 20120522, end: 20130207
  2. GLIMEPIRIDE [Concomitant]
     Indication: TYPE 2 DIABETES MELLITUS
     Dates: start: 201112
  3. METFORMIN [Concomitant]
     Indication: TYPE 2 DIABETES MELLITUS
     Dates: start: 201003
  4. PERINDOPRIL [Concomitant]
     Indication: HYPERTENSION
     Dates: start: 201004
  5. INDAPAMIDE [Concomitant]
     Indication: HYPERTENSION
     Dates: start: 201004
  6. PROPAFENONE [Concomitant]
     Indication: EXTRASYSTOLES
     Dates: start: 201111, end: 20120815
  7. CARVEDILOL [Concomitant]
     Indication: HYPERTENSION
     Dates: start: 20121020
  8. NEBIVOLOL [Concomitant]
     Indication: HYPERTENSION
     Dates: start: 2011, end: 20121019
  9. AMIODARONE [Concomitant]
     Indication: ARRHYTHMIA
     Dates: start: 20120816
  10. N-ACETYLCYSTEINE [Concomitant]
     Indication: LUNG DISORDER
     Dates: start: 20130109

REACTIONS (2)
  - Lung neoplasm [Not Recovered/Not Resolved]
  - Shock [Fatal]
